FAERS Safety Report 6143048-1 (Version None)
Quarter: 2009Q2

REPORT INFORMATION
  Report Type: 
  Country: None (occurrence: None)
  Receive Date: 20090403
  Receipt Date: 20090323
  Transmission Date: 20091009
  Serious: Yes (Other)
  Sender: FDA-Public Use
  Company Number: CA-PFIZER INC-2009187583

PATIENT

DRUGS (9)
  1. PREGABALIN [Suspect]
     Indication: OSTEOARTHRITIS
     Dosage: 50 MG, 1X/DAY
  2. OMEPRAZOLE [Concomitant]
     Dosage: 20 MG, 1X/DAY
  3. CALCIUM CARBONATE [Concomitant]
     Dosage: 500 MG, 1X/DAY
  4. VITAMIN D [Concomitant]
     Dosage: UNK %, UNK
  5. CELECOXIB [Concomitant]
     Dosage: 100 MG, UNK
  6. ETIDRONATE DISODIUM [Concomitant]
     Dosage: 400 MG, 1X/DAY
  7. GALENIC /FLUTICASONE/SALMETEROL/ [Concomitant]
     Dosage: 125 UG, UNK
  8. ACETAMINOPHEN [Concomitant]
  9. IBUPROFEN [Concomitant]
     Dosage: 400 MG, UNK

REACTIONS (10)
  - ANXIETY [None]
  - BLOOD CREATININE INCREASED [None]
  - BLOOD LACTATE DEHYDROGENASE INCREASED [None]
  - C-REACTIVE PROTEIN INCREASED [None]
  - CHRONIC OBSTRUCTIVE PULMONARY DISEASE [None]
  - HEART RATE INCREASED [None]
  - HYPERTENSION [None]
  - THROMBOCYTOPENIA [None]
  - URINARY TRACT INFECTION [None]
  - WHITE BLOOD CELL COUNT INCREASED [None]
